FAERS Safety Report 24759437 (Version 1)
Quarter: 2024Q4

REPORT INFORMATION
  Report Type: Report from Study
  Country: KR (occurrence: KR)
  Receive Date: 20241220
  Receipt Date: 20241220
  Transmission Date: 20250115
  Serious: Yes (Other)
  Sender: ALEXION PHARMACEUTICALS
  Company Number: KR-AstraZeneca-CH-00767641A

PATIENT

DRUGS (2)
  1. DURVALUMAB [Suspect]
     Active Substance: DURVALUMAB
  2. DURVALUMAB [Suspect]
     Active Substance: DURVALUMAB

REACTIONS (3)
  - Neuropathy peripheral [Unknown]
  - Urticaria [Unknown]
  - Pruritus [Unknown]
